FAERS Safety Report 10584615 (Version 8)
Quarter: 2015Q3

REPORT INFORMATION
  Report Type: Report from Study
  Country: US (occurrence: US)
  Receive Date: 20141114
  Receipt Date: 20150806
  Transmission Date: 20151125
  Serious: Yes (Hospitalization, Other)
  Sender: FDA-Public Use
  Company Number: US-SANOFI-AVENTIS-2013SA067101

PATIENT
  Age: 67 Year
  Sex: Female
  Weight: 95.25 kg

DRUGS (8)
  1. DIAZEPAM. [Concomitant]
     Active Substance: DIAZEPAM
     Indication: DIZZINESS
     Route: 065
     Dates: start: 2010
  2. CARVEDILOL. [Concomitant]
     Active Substance: CARVEDILOL
     Indication: CARDIAC DISORDER
     Route: 065
     Dates: start: 201211
  3. CELEBREX [Concomitant]
     Active Substance: CELECOXIB
  4. AUBAGIO [Suspect]
     Active Substance: TERIFLUNOMIDE
     Indication: MULTIPLE SCLEROSIS
     Dosage: TAKEN FROM: 5 MONTHS AGO
     Route: 048
     Dates: start: 20130125
  5. ZOLPIDEM [Suspect]
     Active Substance: ZOLPIDEM\ZOLPIDEM TARTRATE
     Indication: SLEEP DISORDER
     Route: 065
     Dates: start: 201211
  6. NEXIUM [Concomitant]
     Active Substance: ESOMEPRAZOLE MAGNESIUM
     Indication: GASTROOESOPHAGEAL REFLUX DISEASE
     Route: 065
     Dates: start: 2009
  7. LISINOPRIL. [Concomitant]
     Active Substance: LISINOPRIL
     Indication: CARDIOMYOPATHY
     Dosage: DATE STARTED: 2 YEARS
     Route: 065
     Dates: start: 201211
  8. AUBAGIO [Suspect]
     Active Substance: TERIFLUNOMIDE
     Indication: MULTIPLE SCLEROSIS
     Dosage: TAKEN FROM: 5 MONTHS AGO
     Route: 048
     Dates: start: 20130125

REACTIONS (7)
  - Sleep disorder [Unknown]
  - Arthralgia [Unknown]
  - Walking aid user [Recovering/Resolving]
  - Burning sensation [Not Recovered/Not Resolved]
  - Carpal tunnel syndrome [Recovering/Resolving]
  - Migraine with aura [Unknown]
  - Dizziness [Recovered/Resolved]
